FAERS Safety Report 4917925-0 (Version None)
Quarter: 2006Q1

REPORT INFORMATION
  Report Type: 
  Country: None (occurrence: None)
  Receive Date: 20060221
  Receipt Date: 20051003
  Transmission Date: 20060701
  Serious: Yes (Hospitalization, Other)
  Sender: FDA-Public Use
  Company Number: US-MERCK-0510USA02578

PATIENT
  Age: 67 Year
  Sex: Male

DRUGS (1)
  1. VIOXX [Suspect]
     Route: 048

REACTIONS (20)
  - ACUTE RESPIRATORY FAILURE [None]
  - ANAEMIA [None]
  - ASTHENIA [None]
  - BLOOD CHOLESTEROL INCREASED [None]
  - CARDIAC FAILURE CONGESTIVE [None]
  - CORONARY ARTERY DISEASE [None]
  - DIABETES MELLITUS [None]
  - HEADACHE [None]
  - HYPERTENSION [None]
  - ISCHAEMIC CARDIOMYOPATHY [None]
  - ISCHAEMIC STROKE [None]
  - MYOCARDIAL INFARCTION [None]
  - MYOCARDIAL ISCHAEMIA [None]
  - OBESITY [None]
  - OEDEMA PERIPHERAL [None]
  - PULMONARY OEDEMA [None]
  - RENAL FAILURE [None]
  - RENAL FAILURE ACUTE [None]
  - SLEEP APNOEA SYNDROME [None]
  - TRANSIENT ISCHAEMIC ATTACK [None]
